FAERS Safety Report 21998052 (Version 11)
Quarter: 2024Q2

REPORT INFORMATION
  Report Type: Spontaneous
  Country: CA (occurrence: CA)
  Receive Date: 20230216
  Receipt Date: 20240404
  Transmission Date: 20240715
  Serious: Yes (Other)
  Sender: FDA-Public Use
  Company Number: CA-CELLTRION INC.-2022CA019877

PATIENT

DRUGS (11)
  1. INFLECTRA [Suspect]
     Active Substance: INFLIXIMAB-DYYB
     Indication: Crohn^s disease
     Dosage: 400 MG EVERY 0, 2, 6, THEN EVERY 8 WEEKS (PATIENT IS SUPPOSED TO RECEIVE 5MG/KG)
     Route: 042
     Dates: start: 20221116
  2. INFLECTRA [Suspect]
     Active Substance: INFLIXIMAB-DYYB
     Dosage: 400 MG EVERY 0, 2, 6, THEN EVERY 8 WEEKS (PATIENT IS SUPPOSED TO RECEIVE 5MG/KG)
     Route: 042
     Dates: start: 20221212
  3. INFLECTRA [Suspect]
     Active Substance: INFLIXIMAB-DYYB
     Dosage: 400 MG EVERY 0, 2, 6, THEN EVERY 8 WEEKS (PATIENT IS SUPPOSED TO RECEIVE 5MG/KG)
     Route: 042
     Dates: start: 20230206
  4. INFLECTRA [Suspect]
     Active Substance: INFLIXIMAB-DYYB
     Dosage: 400 MG EVERY 0, 2, 6, THEN EVERY 8 WEEKS (PATIENT IS SUPPOSED TO RECEIVE 5MG/KG)
     Route: 042
     Dates: start: 20230503
  5. INFLECTRA [Suspect]
     Active Substance: INFLIXIMAB-DYYB
     Dosage: 400 MG EVERY 0, 2, 6, THEN EVERY 8 WEEKS (PATIENT IS SUPPOSED TO RECEIVE 5MG/KG) (6 WEEKS)
     Route: 042
     Dates: start: 20230614
  6. INFLECTRA [Suspect]
     Active Substance: INFLIXIMAB-DYYB
     Dosage: 5 MG/KG  EVERY 6 WEEKS
     Route: 042
  7. INFLECTRA [Suspect]
     Active Substance: INFLIXIMAB-DYYB
     Dosage: 400 MG, AFTER 6 WEEKS (SUPPOSED TO RECEIVE 5 MG/KG)
     Route: 042
     Dates: start: 20230720
  8. INFLECTRA [Suspect]
     Active Substance: INFLIXIMAB-DYYB
     Dosage: 400MG, EVERY 6 WEEKS (SUPPOSED TO RECEIVE 5 MG/KG)
     Route: 042
     Dates: start: 20230831
  9. INFLECTRA [Suspect]
     Active Substance: INFLIXIMAB-DYYB
     Dosage: 400 MG, 5 WEEKS
     Route: 042
     Dates: start: 20231005
  10. INFLECTRA [Suspect]
     Active Substance: INFLIXIMAB-DYYB
     Dosage: 400MG, EVERY 5 WEEKS (SUPPOSED TO RECEIVE 5 MG/KG)
     Route: 042
     Dates: start: 20240222
  11. INFLECTRA [Suspect]
     Active Substance: INFLIXIMAB-DYYB
     Dosage: 400MG, EVERY 5 WEEKS (SUPPOSED TO RECEIVE 5 MG/KG)
     Route: 042
     Dates: start: 20240326

REACTIONS (4)
  - Condition aggravated [Not Recovered/Not Resolved]
  - Drug level above therapeutic [Unknown]
  - Off label use [Unknown]
  - Incorrect dose administered [Unknown]

NARRATIVE: CASE EVENT DATE: 20220101
